FAERS Safety Report 5056856-5 (Version None)
Quarter: 2006Q2

REPORT INFORMATION
  Report Type: 
  Country: None (occurrence: None)
  Receive Date: 20060622
  Receipt Date: 20050506
  Transmission Date: 20061013
  Serious: Yes (Death)
  Sender: FDA-Public Use
  Company Number: US-JNJFOC-20050502164

PATIENT
  Age: 48 Year
  Sex: Female

DRUGS (13)
  1. DURAGESIC-100 [Suspect]
     Indication: DRUG USE FOR UNKNOWN INDICATION
     Dosage: TRANSDERMAL
     Route: 062
  2. GABAPENTIN [Concomitant]
  3. MEPROBAMATE [Concomitant]
  4. CARISOPRODOL [Concomitant]
  5. NORPROPOXYPHENE (DEXTROPROPOXYPHENE) [Concomitant]
  6. AMITRIPTYLINE (AMITRIPTYLINE) [Concomitant]
  7. NORTRIPTYLINE HCL [Concomitant]
  8. PAROXETINE [Concomitant]
  9. TEMAZEPAM [Concomitant]
  10. ZOLPIDEM TARTRATE [Concomitant]
  11. ACETAMINOPHEN [Concomitant]
  12. ALPRAZOLAM [Concomitant]
  13. PROPOXYPHENE HCL [Concomitant]

REACTIONS (2)
  - DRUG ABUSER [None]
  - DRUG TOXICITY [None]
